FAERS Safety Report 4880120-8 (Version None)
Quarter: 2006Q1

REPORT INFORMATION
  Report Type: 
  Country: None (occurrence: None)
  Receive Date: 20060111
  Receipt Date: 20051227
  Transmission Date: 20060701
  Serious: Yes (Hospitalization)
  Sender: FDA-Public Use
  Company Number: 219937

PATIENT
  Age: 68 Year
  Sex: Male
  Weight: 90 kg

DRUGS (4)
  1. AVASTIN [Suspect]
     Indication: COLON CANCER
     Dosage: 5 MG/M2, Q2W, INTRAVENOUS
     Route: 042
     Dates: start: 20041209, end: 20051020
  2. OXALIPLATIN(OXALIPLATIN) [Suspect]
     Indication: COLON CANCER
     Dosage: 85 MG/M2
  3. FLUOROURACIL [Suspect]
     Indication: COLON CANCER
     Dosage: 400 SINGLE, INTRAVENOUS; 2400 MG/M2
     Route: 042
  4. LEUCOVORIN CALCIUM [Suspect]
     Indication: COLON CANCER
     Dosage: 400 MG/M2

REACTIONS (16)
  - ABDOMINAL DISCOMFORT [None]
  - ASTHENIA [None]
  - BAND NEUTROPHIL PERCENTAGE INCREASED [None]
  - BLOOD CREATININE INCREASED [None]
  - BLOOD PRESSURE DECREASED [None]
  - BLOOD UREA INCREASED [None]
  - BUTTOCK PAIN [None]
  - CARDIOMEGALY [None]
  - MALAISE [None]
  - NECROTISING FASCIITIS [None]
  - NEUTROPHIL PERCENTAGE DECREASED [None]
  - PROTEIN URINE PRESENT [None]
  - SCROTAL OEDEMA [None]
  - SEPSIS [None]
  - SINUS TACHYCARDIA [None]
  - WHITE BLOOD CELL COUNT INCREASED [None]
